FAERS Safety Report 8777610 (Version 1)
Quarter: 2012Q4

REPORT INFORMATION
  Report Type: 
  Country: US (occurrence: US)
  Receive Date: 20120912
  Receipt Date: 20120912
  Transmission Date: 20130627
  Serious: Yes (Hospitalization, Other)
  Sender: FDA-Public Use
  Company Number: US-ABBOTT-12P-163-0977001-00

PATIENT
  Age: 63 None
  Sex: Female
  Weight: 80.81 kg

DRUGS (2)
  1. VICODIN 5/500 [Suspect]
     Indication: PAIN
     Dosage: 5/500
  2. ZANTAC [Concomitant]
     Indication: GASTRIC DISORDER

REACTIONS (9)
  - Thrombosis [Recovered/Resolved]
  - Injury [Recovered/Resolved with Sequelae]
  - Arthropathy [Recovered/Resolved with Sequelae]
  - Wound [Recovered/Resolved with Sequelae]
  - Neuropathy peripheral [Not Recovered/Not Resolved]
  - Spinal fracture [Recovered/Resolved with Sequelae]
  - Fall [Recovered/Resolved]
  - Road traffic accident [Recovered/Resolved]
  - Wheelchair user [Unknown]
